FAERS Safety Report 5483954-4 (Version None)
Quarter: 2007Q4

REPORT INFORMATION
  Report Type: 
  Country: None (occurrence: None)
  Receive Date: 20071012
  Receipt Date: 20071008
  Transmission Date: 20080405
  Serious: Yes (Hospitalization)
  Sender: FDA-Public Use
  Company Number: GB-MERCK-0710GBR00051

PATIENT
  Age: 86 Year
  Sex: Male

DRUGS (3)
  1. ZOCOR [Suspect]
     Indication: ANGIOPATHY
     Route: 048
  2. RAMIPRIL [Concomitant]
     Route: 065
  3. AMLODIPINE BESYLATE [Concomitant]
     Route: 065

REACTIONS (3)
  - HYPOTENSION [None]
  - MYOCARDIAL INFARCTION [None]
  - SYNCOPE [None]
